FAERS Safety Report 24776066 (Version 2)
Quarter: 2025Q3

REPORT INFORMATION
  Report Type: Spontaneous
  Country: JP (occurrence: JP)
  Receive Date: 20241226
  Receipt Date: 20250710
  Transmission Date: 20251020
  Serious: Yes (Other)
  Sender: GLAXOSMITHKLINE
  Company Number: JP-TAKEDA-2024TJP018195

PATIENT
  Sex: Female

DRUGS (2)
  1. ZEJULA [Suspect]
     Active Substance: NIRAPARIB
     Indication: Ovarian cancer
     Dosage: 100 MG, QD
  2. ZEJULA [Suspect]
     Active Substance: NIRAPARIB
     Dosage: 100 MG, QD

REACTIONS (2)
  - Ovarian cancer recurrent [Not Recovered/Not Resolved]
  - C-reactive protein abnormal [Unknown]

NARRATIVE: CASE EVENT DATE: 20240726
